FAERS Safety Report 19625845 (Version 2)
Quarter: 2022Q2

REPORT INFORMATION
  Report Type: Spontaneous
  Country: JP (occurrence: JP)
  Receive Date: 20210728
  Receipt Date: 20220517
  Transmission Date: 20220720
  Serious: Yes (Death)
  Sender: FDA-Public Use
  Company Number: JP-DSJP-DSJ-2021-118958

PATIENT
  Age: 80 Year
  Sex: Male
  Weight: 55 kg

DRUGS (1)
  1. ENHERTU [Suspect]
     Active Substance: FAM-TRASTUZUMAB DERUXTECAN-NXKI
     Indication: HER2 positive gastric cancer
     Dosage: 5.4 MG/KG, ONCE EVERY 3 WK
     Route: 041
     Dates: start: 20210427, end: 20210427

REACTIONS (2)
  - Metastases to skin [Fatal]
  - Underdose [Unknown]

NARRATIVE: CASE EVENT DATE: 20210427
